FAERS Safety Report 7530719-5 (Version None)
Quarter: 2011Q2

REPORT INFORMATION
  Report Type: 
  Country: None (occurrence: None)
  Receive Date: 20110607
  Receipt Date: 20110520
  Transmission Date: 20111010
  Serious: Yes (Death, Hospitalization, Other)
  Sender: FDA-Public Use
  Company Number: IE-PFIZER INC-2008013168

PATIENT
  Age: 54 Year
  Sex: Male
  Weight: 91.8 kg

DRUGS (10)
  1. CLOPIDOGREL [Concomitant]
  2. LIPITOR [Interacting]
     Dosage: 80 MG, 1X/DAY
  3. FUSIDIC ACID [Interacting]
     Indication: OSTEOMYELITIS
     Dosage: 500 MG, EVERY 8 HOURS
  4. LIPITOR [Suspect]
     Indication: BLOOD CHOLESTEROL
     Dosage: 10 MG, 1X/DAY
  5. FLUCLOXACILLIN [Concomitant]
     Indication: OSTEOMYELITIS
     Dosage: 2 G, EVERY 4 HRS
     Route: 042
  6. PREGABALIN [Concomitant]
     Indication: PAIN
     Dosage: 100 MG, EVERY 8 HRS
     Route: 048
  7. BUPRENORPHINE [Concomitant]
     Indication: PAIN
     Dosage: 25 UG, UNK
     Route: 061
  8. RAMIPRIL [Concomitant]
  9. METRONIDAZOLE [Concomitant]
     Indication: OSTEOMYELITIS
     Dosage: 500 MG, EVERY 8 HRS
     Route: 042
  10. ACETYLSALICYLIC ACID [Concomitant]

REACTIONS (13)
  - RHABDOMYOLYSIS [None]
  - RENAL FAILURE ACUTE [None]
  - MYOCARDIAL ISCHAEMIA [None]
  - OSTEITIS [None]
  - THROMBOCYTOPENIA [None]
  - DEATH [None]
  - DIABETES MELLITUS [None]
  - DRUG INTERACTION [None]
  - MYOCARDIAL INFARCTION [None]
  - SKIN ULCER [None]
  - PNEUMONIA [None]
  - MULTI-ORGAN FAILURE [None]
  - ENTEROCOCCAL INFECTION [None]
